FAERS Safety Report 20169908 (Version 2)
Quarter: 2021Q4

REPORT INFORMATION
  Report Type: Report from Study
  Country: US (occurrence: US)
  Receive Date: 20211210
  Receipt Date: 20211228
  Transmission Date: 20220303
  Serious: Yes (Hospitalization, Other)
  Sender: FDA-Public Use
  Company Number: US-EXELIXIS-CABO-21047023

PATIENT
  Sex: Male

DRUGS (13)
  1. CABOMETYX [Suspect]
     Active Substance: CABOZANTINIB S-MALATE
     Indication: Thyroid cancer
     Dosage: 60 MG, QD
     Dates: start: 20211112, end: 20211218
  2. SULFAMINE OXALATE [Concomitant]
  3. AMOXICILLIN\CLAVULANATE POTASSIUM [Concomitant]
     Active Substance: AMOXICILLIN\CLAVULANATE POTASSIUM
  4. AMLODIPINE [Concomitant]
     Active Substance: AMLODIPINE BESYLATE
  5. ATORVASTATIN [Concomitant]
     Active Substance: ATORVASTATIN
  6. FINASTERIDE [Concomitant]
     Active Substance: FINASTERIDE
  7. LEVOTHYROXINE [Concomitant]
     Active Substance: LEVOTHYROXINE
  8. LEXAPRO [Concomitant]
     Active Substance: ESCITALOPRAM OXALATE
  9. LIOTHYRONINE [Concomitant]
     Active Substance: LIOTHYRONINE
  10. METFORMIN [Concomitant]
     Active Substance: METFORMIN HYDROCHLORIDE
  11. LOSARTAN [Concomitant]
     Active Substance: LOSARTAN
  12. OMEPRAZOLE [Concomitant]
     Active Substance: OMEPRAZOLE
  13. ROSUVASTATIN [Concomitant]
     Active Substance: ROSUVASTATIN

REACTIONS (9)
  - Upper limb fracture [Unknown]
  - Fall [Not Recovered/Not Resolved]
  - Pruritus [Recovered/Resolved]
  - Stomatitis [Not Recovered/Not Resolved]
  - Fatigue [Not Recovered/Not Resolved]
  - Taste disorder [Not Recovered/Not Resolved]
  - Weight decreased [Recovered/Resolved]
  - Constipation [Recovered/Resolved]
  - Decreased appetite [Not Recovered/Not Resolved]
